FAERS Safety Report 5712233-2 (Version None)
Quarter: 2008Q2

REPORT INFORMATION
  Report Type: 
  Country: None (occurrence: None)
  Receive Date: 20080417
  Receipt Date: 20080401
  Transmission Date: 20081010
  Serious: Yes (Other)
  Sender: FDA-Public Use
  Company Number: 002#2#2008-00192

PATIENT
  Age: 73 Year
  Sex: Male

DRUGS (3)
  1. OMEPRAZOLE [Suspect]
     Dosage: MG, , ORAL
     Route: 048
     Dates: start: 20071001
  2. SIMVASTATIN [Concomitant]
  3. PANGESTYME [Concomitant]

REACTIONS (1)
  - COELIAC DISEASE [None]
